FAERS Safety Report 5139725-1 (Version None)
Quarter: 2006Q4

REPORT INFORMATION
  Report Type: 
  Country: None (occurrence: None)
  Receive Date: 20061024
  Receipt Date: 20061013
  Transmission Date: 20070319
  Serious: Yes (Death)
  Sender: FDA-Public Use
  Company Number: A-CH2006-12087

PATIENT
  Age: 5 Year
  Sex: Female
  Weight: 15 kg

DRUGS (2)
  1. ZAVESCA [Suspect]
     Indication: INTERFERON GAMMA RECEPTOR DEFICIENCY
     Dosage: SEE IMAGE
     Route: 048
     Dates: start: 20051001, end: 20051101
  2. ZAVESCA [Suspect]
     Indication: INTERFERON GAMMA RECEPTOR DEFICIENCY
     Dosage: SEE IMAGE
     Route: 048
     Dates: start: 20060401, end: 20060527

REACTIONS (3)
  - CONDITION AGGRAVATED [None]
  - HYPERTRICHOSIS [None]
  - MYCOBACTERIUM AVIUM COMPLEX INFECTION [None]
